FAERS Safety Report 8524696-8 (Version None)
Quarter: 2012Q3

REPORT INFORMATION
  Report Type: 
  Country: None (occurrence: None)
  Receive Date: 20120720
  Receipt Date: 20120711
  Transmission Date: 20120928
  Serious: Yes (Death)
  Sender: FDA-Public Use
  Company Number: SI-ROCHE-779719

PATIENT
  Age: 68 Year
  Sex: Female

DRUGS (3)
  1. MIRCERA [Suspect]
     Indication: NEPHROGENIC ANAEMIA
     Route: 042
  2. CARENAL [Concomitant]
  3. VENOFER [Concomitant]
     Dosage: REPORTED AS VENOFER 100 MG/14 DAYS

REACTIONS (2)
  - GENERAL PHYSICAL HEALTH DETERIORATION [None]
  - CARDIAC ARREST [None]
